FAERS Safety Report 18791868 (Version 1)
Quarter: 2021Q1

REPORT INFORMATION
  Report Type: Spontaneous
  Country: US (occurrence: US)
  Receive Date: 20210126
  Receipt Date: 20210126
  Transmission Date: 20210419
  Serious: Yes (Other)
  Sender: FDA-Public Use
  Company Number: US-ENDO PHARMACEUTICALS INC-2020-001944

PATIENT
  Age: 66 Year
  Sex: Male

DRUGS (1)
  1. PERCOCET [Suspect]
     Active Substance: ACETAMINOPHEN\OXYCODONE HYDROCHLORIDE
     Indication: PAIN MANAGEMENT
     Dosage: 5 MG EVERY 4 TO 5 HRS AROUND THE CLOCK FOR AT LEAST 12 YEARS
     Route: 048

REACTIONS (2)
  - Drug dependence [Unknown]
  - Pain [Unknown]
